FAERS Safety Report 23475390 (Version 1)
Quarter: 2024Q1

REPORT INFORMATION
  Report Type: Report from Study
  Country: US (occurrence: US)
  Receive Date: 20240204
  Receipt Date: 20240204
  Transmission Date: 20240410
  Serious: No
  Sender: FDA-Public Use
  Company Number: US-EXELIXIS-CABO-22059323

PATIENT
  Age: 61 Year
  Sex: Female

DRUGS (1)
  1. CABOMETYX [Suspect]
     Active Substance: CABOZANTINIB S-MALATE
     Indication: Renal cancer
     Dosage: 40 MG, QD
     Route: 048
     Dates: start: 20221202

REACTIONS (15)
  - Gastrooesophageal reflux disease [Unknown]
  - Heart rate increased [Unknown]
  - Blister [Unknown]
  - Oral pain [Unknown]
  - Taste disorder [Unknown]
  - Blood pressure increased [Unknown]
  - Fatigue [Recovering/Resolving]
  - Dyspepsia [Unknown]
  - Diarrhoea [Unknown]
  - Abdominal pain upper [Unknown]
  - Dysphonia [Unknown]
  - Rash [Unknown]
  - Hypothyroidism [Unknown]
  - Hepatic enzyme increased [Unknown]
  - Constipation [Unknown]

NARRATIVE: CASE EVENT DATE: 20221201
